FAERS Safety Report 15678457 (Version 2)
Quarter: 2019Q1

REPORT INFORMATION
  Report Type: Spontaneous
  Country: US (occurrence: US)
  Receive Date: 20181201
  Receipt Date: 20190108
  Transmission Date: 20190417
  Serious: No
  Sender: FDA-Public Use
  Company Number: US-ASTRAZENECA-2018SF48881

PATIENT
  Age: 53 Year
  Sex: Male
  Weight: 98.4 kg

DRUGS (2)
  1. OXYGEN. [Concomitant]
     Active Substance: OXYGEN
     Indication: LUNG NEOPLASM MALIGNANT
     Dosage: 7.0L/MIN CONTINUOUSLY
     Route: 055
     Dates: start: 2014
  2. SYMBICORT [Suspect]
     Active Substance: BUDESONIDE\FORMOTEROL FUMARATE DIHYDRATE
     Indication: LUNG NEOPLASM MALIGNANT
     Dosage: 2 PUFFS, TWO TIMES A DAY
     Route: 055
     Dates: start: 2008

REACTIONS (5)
  - Device issue [Unknown]
  - Hypoacusis [Unknown]
  - Off label use [Unknown]
  - Product use in unapproved indication [Unknown]
  - Intentional product misuse [Unknown]

NARRATIVE: CASE EVENT DATE: 2008
